FAERS Safety Report 12346755 (Version 1)
Quarter: 2016Q2

REPORT INFORMATION
  Report Type: Spontaneous
  Country: RU (occurrence: RU)
  Receive Date: 20160509
  Receipt Date: 20160509
  Transmission Date: 20160815
  Serious: Yes (Other)
  Sender: FDA-Public Use
  Company Number: RU-ROCHE-1752956

PATIENT
  Age: 8 Year
  Sex: Female

DRUGS (1)
  1. ACTEMRA [Suspect]
     Active Substance: TOCILIZUMAB
     Indication: RHEUMATOID ARTHRITIS
     Route: 042
     Dates: start: 201509

REACTIONS (1)
  - Dermatitis herpetiformis [Not Recovered/Not Resolved]

NARRATIVE: CASE EVENT DATE: 201603
